FAERS Safety Report 12242358 (Version 1)
Quarter: 2016Q2

REPORT INFORMATION
  Report Type: Spontaneous
  Country: TW (occurrence: TW)
  Receive Date: 20160406
  Receipt Date: 20160406
  Transmission Date: 20160815
  Serious: Yes (Other)
  Sender: FDA-Public Use
  Company Number: TW-BIOCRYST PHARMACEUTICALS, INC.-2016BCR00130

PATIENT
  Age: 7 Year
  Sex: Male
  Weight: 23 kg

DRUGS (8)
  1. AMOXICILLIN HYDRATE [Concomitant]
     Active Substance: AMOXICILLIN
     Dosage: 2400 MG, 1X/DAY
     Route: 042
     Dates: start: 20160322
  2. LEVETIRACETAM. [Concomitant]
     Active Substance: LEVETIRACETAM
     Dosage: 460 MG, 1X/DAY
     Route: 042
     Dates: start: 20160322
  3. MIDAZOLAM [Concomitant]
     Active Substance: MIDAZOLAM\MIDAZOLAM HYDROCHLORIDE
     Dosage: UNK
     Route: 042
     Dates: start: 20160322
  4. FAMOTIDINE. [Concomitant]
     Active Substance: FAMOTIDINE
     Dosage: 40 MG, 1X/DAY
     Route: 042
     Dates: start: 20160322
  5. RAPIACTA [Suspect]
     Active Substance: PERAMIVIR
     Indication: INFLUENZA
     Dosage: 230 MG, UNK
     Route: 042
     Dates: start: 20160322, end: 20160322
  6. DOPAMINE HYDROCHLORIDE. [Concomitant]
     Active Substance: DOPAMINE HYDROCHLORIDE
     Dosage: UNK
     Route: 042
     Dates: start: 20160322
  7. DOBUTAMINE HYDROCHLORIDE. [Concomitant]
     Active Substance: DOBUTAMINE HYDROCHLORIDE
     Dosage: 116 MG, 1X/DAY
     Route: 042
     Dates: start: 20160322
  8. PHENYTOIN. [Concomitant]
     Active Substance: PHENYTOIN
     Dosage: 116 MG, 1X/DAY
     Route: 042
     Dates: start: 20160322

REACTIONS (1)
  - Hepatitis acute [Unknown]
